FAERS Safety Report 8208453-8 (Version None)
Quarter: 2012Q1

REPORT INFORMATION
  Report Type: 
  Country: None (occurrence: None)
  Receive Date: 20120314
  Receipt Date: 20120309
  Transmission Date: 20120608
  Serious: Yes (Other)
  Sender: FDA-Public Use
  Company Number: IT-PFIZER INC-2012064103

PATIENT
  Age: 40 Year
  Sex: Female

DRUGS (2)
  1. SUTENT [Suspect]
     Indication: RENAL CANCER
     Dosage: 50 MG, 1X/DAY
     Route: 048
     Dates: start: 20110531, end: 20120302
  2. SYNACTHEN [Concomitant]
     Indication: RENAL CANCER
     Dosage: 1 MG, UNK
     Route: 030

REACTIONS (5)
  - CONSTIPATION [None]
  - SKIN LESION [None]
  - EPISTAXIS [None]
  - STOMATITIS [None]
  - Q FEVER [None]
